FAERS Safety Report 9401923 (Version 2)
Quarter: 2013Q3

REPORT INFORMATION
  Report Type: Spontaneous
  Country: US (occurrence: US)
  Receive Date: 20130716
  Receipt Date: 20130826
  Transmission Date: 20140515
  Serious: No
  Sender: FDA-Public Use
  Company Number: US-PFIZER INC-2013204116

PATIENT
  Age: 71 Year
  Sex: Male
  Weight: 83.4 kg

DRUGS (9)
  1. SOMAVERT [Suspect]
     Indication: ACROMEGALY
     Dosage: 20 MG, EVERY MONDAY, WEDNESDAY, + FRIDAY
     Route: 058
     Dates: start: 20091028
  2. FELODIPINE [Concomitant]
     Dosage: 10 MG, UNK
  3. FISH OIL [Concomitant]
     Dosage: 340-100
  4. MELOXICAM [Concomitant]
     Dosage: 7.5 MG, UNK
  5. METOPROLOL TARTRATE [Concomitant]
     Dosage: 25 MG, UNK
  6. MULTIVITAMINS [Concomitant]
     Dosage: UNK
  7. POTASSIUM CITRATE [Concomitant]
     Dosage: 10 MEQ, UNK
  8. SOMATULINE DEPOT [Concomitant]
     Dosage: 120 MG, UNK
  9. VYTORIN [Concomitant]
     Dosage: 10 MG, UNK

REACTIONS (2)
  - Headache [Recovering/Resolving]
  - Pruritus [Unknown]
